FAERS Safety Report 20681196 (Version 2)
Quarter: 2022Q2

REPORT INFORMATION
  Report Type: Spontaneous
  Country: US (occurrence: US)
  Receive Date: 20220406
  Receipt Date: 20220502
  Transmission Date: 20220720
  Serious: No
  Sender: FDA-Public Use
  Company Number: US-SA-SAC20220404000120

PATIENT
  Sex: Female

DRUGS (1)
  1. DUPIXENT [Suspect]
     Active Substance: DUPILUMAB
     Indication: Dermatitis atopic
     Dosage: 300 MG, QOW
     Route: 058
     Dates: start: 202102

REACTIONS (6)
  - Ocular hyperaemia [Unknown]
  - Eye discharge [Not Recovered/Not Resolved]
  - Vision blurred [Unknown]
  - Photophobia [Not Recovered/Not Resolved]
  - Arthralgia [Unknown]
  - Eye pruritus [Unknown]
